FAERS Safety Report 5910793-X (Version None)
Quarter: 2008Q4

REPORT INFORMATION
  Report Type: 
  Country: None (occurrence: None)
  Receive Date: 20081007
  Receipt Date: 20080506
  Transmission Date: 20090506
  Serious: No
  Sender: FDA-Public Use
  Company Number: US-ASTRAZENECA-2008UW09291

PATIENT
  Age: 81 Year
  Sex: Female
  Weight: 61.2 kg

DRUGS (8)
  1. ARIMIDEX [Suspect]
     Indication: BREAST CANCER
     Route: 048
     Dates: start: 20070701
  2. ASPIRIN [Concomitant]
  3. FOSAMAX [Concomitant]
  4. AVAPRO [Concomitant]
  5. POTASSIUM CHLORIDE [Concomitant]
  6. PRILOSEC [Concomitant]
  7. ASCORBIC ACID [Concomitant]
  8. MAGNESIUM SULFATE [Concomitant]

REACTIONS (2)
  - DISTURBANCE IN SEXUAL AROUSAL [None]
  - INSOMNIA [None]
